FAERS Safety Report 7477501-5 (Version None)
Quarter: 2011Q2

REPORT INFORMATION
  Report Type: 
  Country: None (occurrence: None)
  Receive Date: 20110509
  Receipt Date: 20110509
  Transmission Date: 20111010
  Serious: Yes (Other)
  Sender: FDA-Public Use
  Company Number: None

PATIENT
  Age: 37 Year
  Sex: Female
  Weight: 90.7194 kg

DRUGS (1)
  1. TRIAD ALCOHOL PADS [Suspect]
     Indication: THERAPEUTIC SKIN CARE TOPICAL
     Dates: start: 20080613, end: 20110106

REACTIONS (5)
  - TRANSMISSION OF AN INFECTIOUS AGENT VIA A MEDICINAL PRODUCT [None]
  - MALAISE [None]
  - PULMONARY MASS [None]
  - BACTERIAL INFECTION [None]
  - PRODUCT QUALITY ISSUE [None]
